FAERS Safety Report 18588422 (Version 1)
Quarter: 2020Q4

REPORT INFORMATION
  Report Type: Spontaneous
  Country: US (occurrence: US)
  Receive Date: 20201207
  Receipt Date: 20201207
  Transmission Date: 20210114
  Serious: No
  Sender: FDA-Public Use
  Company Number: US-SIGMAPHARM LABORATORIES, LLC-2020SIG00093

PATIENT
  Sex: Female
  Weight: 86.17 kg

DRUGS (6)
  1. VITAMIN D [Concomitant]
     Active Substance: VITAMIN D NOS
     Dosage: 5000 UNK
  2. POTASSIUM TIME RELEASE [Concomitant]
  3. SINGULAIR [Concomitant]
     Active Substance: MONTELUKAST SODIUM
  4. DIOVAN [Concomitant]
     Active Substance: VALSARTAN
  5. LIOTHYRONINE SODIUM. [Suspect]
     Active Substance: LIOTHYRONINE SODIUM
     Dosage: 10 MCG, 3X/DAY; 2 PILLS/2PILLS/2PILLS AT  6 AM, 11 AM, 4 PM
     Route: 060
     Dates: start: 2018, end: 20190403
  6. LIOTHYRONINE SODIUM. [Suspect]
     Active Substance: LIOTHYRONINE SODIUM
     Dosage: 5 MCG, 1X/DAY; 1 PILL AT 9 PM
     Route: 060
     Dates: end: 20190403

REACTIONS (4)
  - Off label use [Recovered/Resolved]
  - Food allergy [Not Recovered/Not Resolved]
  - Vomiting [Recovered/Resolved]
  - Abdominal pain upper [Recovered/Resolved]

NARRATIVE: CASE EVENT DATE: 2018
